FAERS Safety Report 9258000 (Version 1)
Quarter: 2013Q2

REPORT INFORMATION
  Report Type: Spontaneous
  Country: FR (occurrence: FR)
  Receive Date: 20130426
  Receipt Date: 20130426
  Transmission Date: 20140414
  Serious: Yes (Death, Hospitalization, Other)
  Sender: FDA-Public Use
  Company Number: FR-JNJFOC-20130411398

PATIENT
  Age: 56 Year
  Sex: Male

DRUGS (4)
  1. REMICADE [Suspect]
     Indication: RHEUMATOID ARTHRITIS
     Route: 042
     Dates: start: 20011212, end: 20121122
  2. METHOTREXATE [Suspect]
     Indication: RHEUMATOID ARTHRITIS
     Route: 048
     Dates: start: 1995, end: 201212
  3. SPECIAFOLDINE [Concomitant]
     Indication: RHEUMATOID ARTHRITIS
     Route: 048
     Dates: start: 1995, end: 201212
  4. OMEPRAZOLE [Concomitant]
     Route: 065

REACTIONS (6)
  - Interstitial lung disease [Fatal]
  - Acute respiratory failure [Fatal]
  - Acute respiratory distress syndrome [Fatal]
  - Jugular vein thrombosis [Unknown]
  - Atrial fibrillation [Recovering/Resolving]
  - Renal failure [Unknown]
